FAERS Safety Report 22367203 (Version 1)
Quarter: 2023Q2

REPORT INFORMATION
  Report Type: Spontaneous
  Country: US (occurrence: None)
  Receive Date: 20230524
  Receipt Date: 20230524
  Transmission Date: 20230722
  Serious: No
  Sender: FDA-Public Use
  Company Number: None

PATIENT
  Sex: Female

DRUGS (1)
  1. XELODA [Suspect]
     Active Substance: CAPECITABINE
     Route: 048

REACTIONS (14)
  - Dyspnoea [None]
  - Fatigue [None]
  - Loss of consciousness [None]
  - Anxiety [None]
  - Dehydration [None]
  - Memory impairment [None]
  - Fall [None]
  - Swelling face [None]
  - Muscle disorder [None]
  - Therapy interrupted [None]
  - Nausea [None]
  - Eating disorder [None]
  - Weight decreased [None]
  - Vaginal infection [None]
